FAERS Safety Report 18864102 (Version 2)
Quarter: 2021Q2

REPORT INFORMATION
  Report Type: Spontaneous
  Country: US (occurrence: US)
  Receive Date: 20210208
  Receipt Date: 20210401
  Transmission Date: 20210717
  Serious: No
  Sender: FDA-Public Use
  Company Number: NVSC2021US024093

PATIENT
  Sex: Female

DRUGS (2)
  1. VIVELLE?DOT [Suspect]
     Active Substance: ESTRADIOL
     Indication: PRODUCT USED FOR UNKNOWN INDICATION
     Dosage: 0.5 MG ( EVERY 2 WEEKS)
     Route: 065
     Dates: start: 20210129
  2. PROMETRIUM [Concomitant]
     Active Substance: PROGESTERONE
     Indication: PRODUCT USED FOR UNKNOWN INDICATION
     Dosage: 100 MG
     Route: 065

REACTIONS (9)
  - Back pain [Unknown]
  - Drug ineffective [Unknown]
  - Arthralgia [Unknown]
  - Muscle spasms [Unknown]
  - Feeling cold [Unknown]
  - Body temperature fluctuation [Unknown]
  - Menstruation irregular [Unknown]
  - Product physical issue [Unknown]
  - Eye pain [Unknown]
